FAERS Safety Report 19677475 (Version 2)
Quarter: 2023Q4

REPORT INFORMATION
  Report Type: Spontaneous
  Country: US (occurrence: US)
  Receive Date: 20210809
  Receipt Date: 20231128
  Transmission Date: 20240110
  Serious: No
  Sender: FDA-Public Use
  Company Number: US-PFIZER INC-2021509812

PATIENT
  Age: 71 Year
  Sex: Female

DRUGS (1)
  1. XELJANZ XR [Suspect]
     Active Substance: TOFACITINIB CITRATE
     Dosage: TAKE 1 TABLET (11 MG TOTAL) BY MOUTH ONCE DAILY
     Route: 048

REACTIONS (2)
  - Stress [Unknown]
  - General physical health deterioration [Recovering/Resolving]
